FAERS Safety Report 5477512-5 (Version None)
Quarter: 2007Q4

REPORT INFORMATION
  Report Type: 
  Country: None (occurrence: None)
  Receive Date: 20071004
  Receipt Date: 20070926
  Transmission Date: 20080405
  Serious: Yes (Hospitalization)
  Sender: FDA-Public Use
  Company Number: JP-ABBOTT-07P-087-0418442-00

PATIENT
  Age: 69 Year
  Sex: Female
  Weight: 61.4 kg

DRUGS (11)
  1. CLARITHROMYCIN [Suspect]
     Indication: NASOPHARYNGITIS
     Route: 048
     Dates: start: 20070604, end: 20070705
  2. CLARITHROMYCIN [Suspect]
     Route: 048
     Dates: start: 20070315, end: 20070324
  3. MINOCYCLINE HYDROCHLORIDE [Suspect]
     Indication: NASOPHARYNGITIS
     Route: 042
     Dates: start: 20070607, end: 20070607
  4. URSODIOL [Concomitant]
     Indication: BILIARY CIRRHOSIS PRIMARY
     Route: 048
     Dates: start: 20061001
  5. RANITIDINE HYDROCHLORIDE [Concomitant]
     Indication: DRUG USE FOR UNKNOWN INDICATION
     Route: 048
     Dates: start: 20070201, end: 20070205
  6. PL (COMBINATION COLD REMEDY) [Concomitant]
     Indication: NASOPHARYNGITIS
     Route: 048
     Dates: start: 20070315, end: 20070324
  7. DIMEMORFAN PHOSPHATE [Concomitant]
     Indication: NASOPHARYNGITIS
     Route: 048
     Dates: start: 20070315, end: 20070324
  8. PRUNUS ARMENIACA SEED EXTRACT [Concomitant]
     Indication: NASOPHARYNGITIS
     Route: 048
     Dates: start: 20070604
  9. PRUNUS SEROTINA BARK [Concomitant]
     Indication: NASOPHARYNGITIS
     Route: 048
     Dates: start: 20070604
  10. HUSCODE [Concomitant]
     Indication: NASOPHARYNGITIS
     Route: 048
     Dates: start: 20070607
  11. ALFACALCIDOL [Concomitant]
     Indication: DRUG USE FOR UNKNOWN INDICATION
     Route: 048

REACTIONS (2)
  - ANAEMIA HAEMOLYTIC AUTOIMMUNE [None]
  - HAEMOGLOBIN DECREASED [None]
